FAERS Safety Report 9162629 (Version 1)
Quarter: 2013Q1

REPORT INFORMATION
  Report Type: Spontaneous
  Country: GB (occurrence: None)
  Receive Date: 20130225
  Receipt Date: 20130225
  Transmission Date: 20140127
  Serious: No
  Sender: FDA-Public Use
  Company Number: AUR-APL-2013-01526

PATIENT
  Age: 26 Year
  Sex: Female

DRUGS (1)
  1. FLUOXETINE (FLUOXETINE) [Suspect]
     Indication: PRODUCT USED FOR UNKNOWN INDICATION

REACTIONS (6)
  - Headache [None]
  - Crying [None]
  - Dysarthria [None]
  - Feeling abnormal [None]
  - Panic disorder [None]
  - Suicidal ideation [None]
